FAERS Safety Report 16424313 (Version 1)
Quarter: 2019Q2

REPORT INFORMATION
  Report Type: Spontaneous
  Country: CA (occurrence: CA)
  Receive Date: 20190613
  Receipt Date: 20190613
  Transmission Date: 20190711
  Serious: Yes (Hospitalization)
  Sender: FDA-Public Use
  Company Number: CA-TEVA-2019-CA-1063013

PATIENT
  Age: 13 Year
  Sex: Male

DRUGS (2)
  1. ISOTRETINOIN. [Suspect]
     Active Substance: ISOTRETINOIN
     Indication: ACNE CONGLOBATA
     Route: 065
  2. DOXYCYCLINE. [Suspect]
     Active Substance: DOXYCYCLINE
     Indication: ACNE CONGLOBATA
     Route: 065

REACTIONS (8)
  - Arthralgia [Unknown]
  - Intentional product use issue [Unknown]
  - Product administered to patient of inappropriate age [Unknown]
  - Myalgia [Unknown]
  - Acne [Unknown]
  - Neutrophilic dermatosis [Unknown]
  - Pyrexia [Unknown]
  - Off label use [Unknown]
